FAERS Safety Report 19242430 (Version 1)
Quarter: 2021Q2

REPORT INFORMATION
  Report Type: Spontaneous
  Country: FR (occurrence: FR)
  Receive Date: 20210510
  Receipt Date: 20210510
  Transmission Date: 20210717
  Serious: Yes (Death)
  Sender: FDA-Public Use
  Company Number: FR-009507513-2105FRA001556

PATIENT
  Age: 79 Year
  Sex: Male
  Weight: 52.4 kg

DRUGS (1)
  1. DAPTOMYCIN. [Suspect]
     Active Substance: DAPTOMYCIN
     Indication: DEVICE RELATED INFECTION
     Dosage: 500 MILLIGRAM, QD
     Route: 042
     Dates: start: 20210318, end: 20210410

REACTIONS (2)
  - Interstitial lung disease [Fatal]
  - Respiratory distress [Fatal]

NARRATIVE: CASE EVENT DATE: 202104
